FAERS Safety Report 7941882-6 (Version None)
Quarter: 2011Q4

REPORT INFORMATION
  Report Type: 
  Country: None (occurrence: None)
  Receive Date: 20111128
  Receipt Date: 20111115
  Transmission Date: 20120403
  Serious: Yes (Hospitalization)
  Sender: FDA-Public Use
  Company Number: US-BAYER-2011-053866

PATIENT
  Age: 46 Year
  Sex: Female
  Weight: 90.703 kg

DRUGS (8)
  1. YAZ [Suspect]
     Indication: MENSTRUAL CYCLE MANAGEMENT
  2. YAZ [Suspect]
     Indication: PREMENSTRUAL SYNDROME
  3. ULTRAM [Concomitant]
     Indication: PAIN
  4. SINGULAIR [Concomitant]
     Indication: ASTHMA
     Dosage: UNK
     Dates: start: 20070601
  5. WELLBUTRIN [Concomitant]
     Indication: DEPRESSION
     Dosage: 150 MG, QD
     Dates: start: 20090101, end: 20090601
  6. PERCOCET [Concomitant]
     Indication: PAIN
  7. YAZ [Suspect]
     Indication: CONTRACEPTION
     Dosage: UNK
     Dates: start: 20080116, end: 20090615
  8. ADVAIR DISKUS 100/50 [Concomitant]
     Indication: ASTHMA
     Dosage: UNK
     Dates: start: 20070601

REACTIONS (1)
  - DEEP VEIN THROMBOSIS [None]
